FAERS Safety Report 4516178-5 (Version None)
Quarter: 2004Q4

REPORT INFORMATION
  Report Type: 
  Country: None (occurrence: None)
  Receive Date: 20041129
  Receipt Date: 20041110
  Transmission Date: 20050328
  Serious: Yes (Hospitalization)
  Sender: FDA-Public Use
  Company Number: 2004241194US

PATIENT
  Age: 22 Year
  Sex: Female

DRUGS (4)
  1. IRINOTECAN HCL [Suspect]
     Indication: GLIOBLASTOMA MULTIFORME
     Dosage: 235 MG (WEEKLY X4, 2 WEEKS REST), INTRAVENOUS
     Route: 042
     Dates: start: 20040419
  2. THALIDOMIDE (THALIDOMIDE) [Suspect]
     Indication: GLIOBLASTOMA MULTIFORME
     Dosage: 400 MG (DAILY), ORAL
     Route: 048
     Dates: start: 20040419
  3. WARFARIN SODIUM [Concomitant]
  4. LEVETIRACETAM [Concomitant]

REACTIONS (2)
  - CONVULSION [None]
  - MEDICATION ERROR [None]
